FAERS Safety Report 4735052-2 (Version None)
Quarter: 2005Q3

REPORT INFORMATION
  Report Type: 
  Country: None (occurrence: None)
  Receive Date: 20050804
  Receipt Date: 20050721
  Transmission Date: 20060218
  Serious: Yes (Life-Threatening, Hospitalization)
  Sender: FDA-Public Use
  Company Number: MK200507-0221-1

PATIENT
  Age: 24 Year
  Sex: Male

DRUGS (15)
  1. NEUTROSPEC [Suspect]
     Indication: PYREXIA
     Dosage: 23.5 MCI, ONE TIME, IV
     Route: 042
     Dates: start: 20050720, end: 20050720
  2. DEXAMETHASONE SODIUM PHOSPHATE [Concomitant]
  3. DEXAMETHASONE [Concomitant]
  4. LORAZEPAM [Concomitant]
  5. SODIUM CHLORIDE INJ [Concomitant]
  6. ENOXAPARIN SODIUM [Concomitant]
  7. ATROPINE SULFATE [Concomitant]
  8. OXYCODONE AND ACETAMINOPHEN [Concomitant]
  9. BACITRACIN TOPICAL OINTMENT [Concomitant]
  10. ACETAMINOPHEN [Concomitant]
  11. SENNA [Concomitant]
  12. SODIUM BIPHOSPHATE -SODIUM PHOSPHATE ENEMA [Concomitant]
  13. DULCOLAX [Concomitant]
  14. DOCUSATE SODIUM [Concomitant]
  15. HYDROMORPHONE [Concomitant]

REACTIONS (8)
  - CARDIO-RESPIRATORY ARREST [None]
  - CONVULSION [None]
  - ELECTROENCEPHALOGRAM ABNORMAL [None]
  - HAEMATOCRIT DECREASED [None]
  - HAEMOGLOBIN DECREASED [None]
  - RED BLOOD CELL COUNT DECREASED [None]
  - RESPIRATORY DISTRESS [None]
  - WHITE BLOOD CELL COUNT INCREASED [None]
